FAERS Safety Report 20768805 (Version 1)
Quarter: 2022Q2

REPORT INFORMATION
  Report Type: Spontaneous
  Country: US (occurrence: US)
  Receive Date: 20220429
  Receipt Date: 20220429
  Transmission Date: 20220721
  Serious: No
  Sender: FDA-Public Use
  Company Number: US-NOVARTISTESTPH-NVSC2022US099181

PATIENT
  Sex: Female

DRUGS (1)
  1. VOTRIENT [Suspect]
     Active Substance: PAZOPANIB HYDROCHLORIDE
     Indication: Retroperitoneal cancer
     Dosage: UNK
     Route: 048
     Dates: start: 202109

REACTIONS (3)
  - Product use in unapproved indication [Unknown]
  - Headache [Unknown]
  - Nausea [Unknown]
